FAERS Safety Report 7466290-6 (Version None)
Quarter: 2011Q2

REPORT INFORMATION
  Report Type: 
  Country: None (occurrence: None)
  Receive Date: 20110509
  Receipt Date: 20100713
  Transmission Date: 20111010
  Serious: No
  Sender: FDA-Public Use
  Company Number: US-ALEXION-A201000821

PATIENT
  Sex: Female

DRUGS (13)
  1. FOLIC ACID [Concomitant]
     Dosage: UNK
     Route: 048
  2. PREDNISONE [Concomitant]
     Dosage: UNK
  3. COUMADIN [Concomitant]
     Dosage: UNK
     Route: 048
  4. PRILOSEC [Concomitant]
     Dosage: UNK
     Route: 048
  5. POTASSIUM [Concomitant]
     Dosage: UNK
     Route: 048
  6. DANAZOL [Concomitant]
     Dosage: UNK
     Route: 048
  7. ASPIRIN [Concomitant]
     Dosage: 81 MG, QD
     Route: 048
  8. CALCIUM [Concomitant]
     Dosage: UNK
     Route: 048
  9. ATIVAN [Concomitant]
     Dosage: UNK
     Route: 048
  10. SOLIRIS [Suspect]
     Indication: PAROXYSMAL NOCTURNAL HAEMOGLOBINURIA
     Dosage: 600 MG, QW
     Route: 042
     Dates: start: 20100111, end: 20100201
  11. SOLIRIS [Suspect]
     Dosage: 900 MG, Q2W
     Route: 042
     Dates: start: 20100208
  12. FUROSEMIDE [Concomitant]
     Dosage: UNK
     Route: 048
  13. SPIRONOLACTONE [Concomitant]
     Dosage: UNK
     Route: 048

REACTIONS (1)
  - HEADACHE [None]
